FAERS Safety Report 5116631-X (Version None)
Quarter: 2006Q3

REPORT INFORMATION
  Report Type: 
  Country: None (occurrence: None)
  Receive Date: 20060928
  Receipt Date: 20060921
  Transmission Date: 20061208
  Serious: Yes (Congenital Anomaly)
  Sender: FDA-Public Use
  Company Number: US-GLAXOSMITHKLINE-A0620908A

PATIENT
  Sex: Male
  Weight: 4.5 kg

DRUGS (6)
  1. COMBIVIR [Suspect]
     Indication: HIV INFECTION
     Dosage: 1TAB PER DAY
     Dates: start: 20060320, end: 20060804
  2. RETROVIR [Suspect]
     Indication: HIV INFECTION
     Route: 042
     Dates: start: 20060804, end: 20060804
  3. NORVIR [Concomitant]
     Indication: HIV INFECTION
     Dosage: 100MG PER DAY
     Dates: start: 20060320, end: 20060804
  4. REYATAZ [Concomitant]
     Indication: HIV INFECTION
     Dosage: 300MG PER DAY
     Dates: start: 20060330
  5. LAMICTAL [Concomitant]
     Dosage: 25MG PER DAY
  6. NPH INSULIN [Concomitant]

REACTIONS (8)
  - ATRIAL SEPTAL DEFECT [None]
  - CARDIOMEGALY [None]
  - DRUG EXPOSURE DURING PREGNANCY [None]
  - HEART DISEASE CONGENITAL [None]
  - HYPOGLYCAEMIA [None]
  - NEONATAL DISORDER [None]
  - PATENT DUCTUS ARTERIOSUS [None]
  - VENTRICULAR HYPERTROPHY [None]
